FAERS Safety Report 20642349 (Version 1)
Quarter: 2022Q1

REPORT INFORMATION
  Report Type: Spontaneous
  Country: US (occurrence: US)
  Receive Date: 20220328
  Receipt Date: 20220328
  Transmission Date: 20220423
  Serious: No
  Sender: FDA-Public Use
  Company Number: US-CIPLA LTD.-2021US08131

PATIENT

DRUGS (2)
  1. TESTOSTERONE [Suspect]
     Active Substance: TESTOSTERONE
     Indication: Hormone replacement therapy
     Dosage: 1 ML, ONCE A WEEK
     Route: 065
  2. TESTOSTERONE [Suspect]
     Active Substance: TESTOSTERONE
     Dosage: 1 ML, TWICE A WEEK
     Route: 065
     Dates: start: 20211129

REACTIONS (3)
  - Product administration error [Unknown]
  - Multiple use of single-use product [Unknown]
  - Product deposit [Unknown]

NARRATIVE: CASE EVENT DATE: 20211110
